FAERS Safety Report 17096233 (Version 1)
Quarter: 2019Q4

REPORT INFORMATION
  Report Type: Spontaneous
  Country: DE (occurrence: DE)
  Receive Date: 20191202
  Receipt Date: 20191202
  Transmission Date: 20200122
  Serious: Yes (Hospitalization, Other)
  Sender: FDA-Public Use
  Company Number: DE-TEVA-2019-DE-1143808

PATIENT
  Sex: Female

DRUGS (2)
  1. STILNOX 10MG [Suspect]
     Active Substance: ZOLPIDEM TARTRATE
     Dosage: LORAZEPAM AND STILLNOX TAKEN TOGETHER APPR. 200 TABLETS PER WEEK, PER INTAKE UP TO 10 TABLETS
     Route: 048
     Dates: start: 2015, end: 2019
  2. LORAZEPAM 1 MG TABLETTEN [Suspect]
     Active Substance: LORAZEPAM
     Indication: SLEEP DISORDER
     Dosage: LORAZEPAM AND STILLNOX TAKEN TOGETHER APPR. 200 TABLETS PER WEEK, PER INTAKE UP TO 10 TABLETS
     Route: 048
     Dates: start: 2015, end: 2019

REACTIONS (6)
  - Device dependence [Not Recovered/Not Resolved]
  - End stage renal disease [Not Recovered/Not Resolved]
  - Overdose [Unknown]
  - Speech disorder [Unknown]
  - Product dispensing error [Unknown]
  - Personality change [Unknown]

NARRATIVE: CASE EVENT DATE: 20190607
